FAERS Safety Report 12188532 (Version 4)
Quarter: 2016Q2

REPORT INFORMATION
  Report Type: Spontaneous
  Country: FR (occurrence: FR)
  Receive Date: 20160317
  Receipt Date: 20160415
  Transmission Date: 20160815
  Serious: Yes (Life-Threatening, Hospitalization, Other)
  Sender: FDA-Public Use
  Company Number: FR-GILEAD-2016-0203463

PATIENT
  Age: 70 Year
  Sex: Female

DRUGS (4)
  1. CORTANCYL [Concomitant]
     Active Substance: PREDNISONE
  2. EUPANTOL [Concomitant]
     Active Substance: PANTOPRAZOLE SODIUM
  3. HARVONI [Suspect]
     Active Substance: LEDIPASVIR\SOFOSBUVIR
     Indication: CHRONIC HEPATITIS C
     Dosage: 1 DF, QD
     Route: 048
     Dates: start: 20160217, end: 20160301
  4. LEVOTHYROX [Concomitant]
     Active Substance: LEVOTHYROXINE

REACTIONS (4)
  - Respiratory distress [Unknown]
  - Atrial fibrillation [Unknown]
  - Myocarditis [Recovered/Resolved]
  - Acute pulmonary oedema [Recovered/Resolved]

NARRATIVE: CASE EVENT DATE: 201603
